FAERS Safety Report 9404756 (Version 1)
Quarter: 2013Q3

REPORT INFORMATION
  Report Type: Spontaneous
  Country: US (occurrence: None)
  Receive Date: 20130716
  Receipt Date: 20130716
  Transmission Date: 20140515
  Serious: Yes (Life-Threatening)
  Sender: FDA-Public Use
  Company Number: None

PATIENT
  Age: 65 Year
  Sex: Female
  Weight: 46.27 kg

DRUGS (5)
  1. LOTREL [Suspect]
     Indication: HYPERTENSION
     Dosage: 10/40 MB?MOUTH?
     Dates: end: 20140628
  2. IDMUR [Concomitant]
  3. CATAPRES [Concomitant]
  4. SYNTHROID [Concomitant]
  5. ST JUDE PACEMAXER [Concomitant]

REACTIONS (2)
  - Swollen tongue [None]
  - Obstructive airways disorder [None]
